FAERS Safety Report 6418740-1 (Version None)
Quarter: 2009Q4

REPORT INFORMATION
  Report Type: 
  Country: None (occurrence: None)
  Receive Date: 20091026
  Receipt Date: 20091014
  Transmission Date: 20100525
  Serious: Yes (Hospitalization)
  Sender: FDA-Public Use
  Company Number: 2009AC000236

PATIENT
  Age: 72 Year
  Sex: Male

DRUGS (28)
  1. DIGOXIN [Suspect]
     Dosage: .25 MG; QD; PO
     Route: 048
  2. LEXAPRO [Concomitant]
  3. PLAVIX [Concomitant]
  4. ARICEPT [Concomitant]
  5. SEROQUEL [Concomitant]
  6. ALBUTEROL [Concomitant]
  7. REQUIP [Concomitant]
  8. FLOMAX [Concomitant]
  9. SPIRIVA [Concomitant]
  10. ALPRAZOLAM [Concomitant]
  11. SINGULAIR [Concomitant]
  12. XANAX [Concomitant]
  13. FLOMAX [Concomitant]
  14. COREG [Concomitant]
  15. POTASSIUM CHLORIDE [Concomitant]
  16. DILTIAZEM [Concomitant]
  17. FUROSEMIDE [Concomitant]
  18. ADVAIR DISKUS 100/50 [Concomitant]
  19. SPIRONOLACTONE [Concomitant]
  20. CELEXA [Concomitant]
  21. ALDACTONE [Concomitant]
  22. ASCORBIC ACID [Concomitant]
  23. VITAMIN B-COMPLEX WITH VIT C [Concomitant]
  24. LASIX [Concomitant]
  25. ZAROXOLYN [Concomitant]
  26. ARICEPT [Concomitant]
  27. ALBUTEROL SULFATE AUTOHALER [Concomitant]
  28. CARVEDILOL [Concomitant]

REACTIONS (29)
  - ASTHENIA [None]
  - ATRIAL FIBRILLATION [None]
  - BRADYCARDIA [None]
  - CARDIAC FAILURE CONGESTIVE [None]
  - CHRONIC OBSTRUCTIVE PULMONARY DISEASE [None]
  - CONDITION AGGRAVATED [None]
  - CONTUSION [None]
  - CORONARY ARTERY DISEASE [None]
  - DECREASED APPETITE [None]
  - DIASTOLIC DYSFUNCTION [None]
  - DIZZINESS [None]
  - ECONOMIC PROBLEM [None]
  - HAEMOTHORAX [None]
  - INJURY [None]
  - MITRAL VALVE INCOMPETENCE [None]
  - NON-SMALL CELL LUNG CANCER STAGE IIIB [None]
  - OEDEMA PERIPHERAL [None]
  - PAIN [None]
  - PLEURAL EFFUSION [None]
  - PLEURODESIS [None]
  - PRESYNCOPE [None]
  - PULMONARY HYPERTENSION [None]
  - PULMONARY OEDEMA [None]
  - RENAL FAILURE CHRONIC [None]
  - RESTLESS LEGS SYNDROME [None]
  - RESTRICTIVE CARDIOMYOPATHY [None]
  - SLEEP APNOEA SYNDROME [None]
  - THERAPEUTIC AGENT TOXICITY [None]
  - WEIGHT INCREASED [None]
